FAERS Safety Report 8920302 (Version 2)
Quarter: 2012Q4

REPORT INFORMATION
  Report Type: Report from Study
  Country: US (occurrence: US)
  Receive Date: 20121121
  Receipt Date: 20121212
  Transmission Date: 20130627
  Serious: Yes (Other)
  Sender: FDA-Public Use
  Company Number: US-ELI_LILLY_AND_COMPANY-US201208006830

PATIENT
  Age: 19 Year
  Sex: Male
  Weight: 72.56 kg

DRUGS (3)
  1. OLANZAPINE LONG-ACTING IM [Suspect]
     Dosage: 300 mg, unknown
     Route: 030
     Dates: start: 20120817, end: 20120817
  2. ZYPREXA [Concomitant]
     Dosage: 20 mg, unknown
     Route: 065
     Dates: start: 20120816
  3. TRILEPTAL [Concomitant]
     Dosage: 600 mg, bid
     Route: 065
     Dates: start: 20120815

REACTIONS (7)
  - Aggression [Recovered/Resolved]
  - Agitation [Recovered/Resolved]
  - Arrhythmia [Recovered/Resolved]
  - Confusional state [Recovered/Resolved]
  - Delirium [Recovered/Resolved]
  - Disorientation [Recovered/Resolved]
  - Anxiety [Recovered/Resolved]
